FAERS Safety Report 18769037 (Version 2)
Quarter: 2021Q1

REPORT INFORMATION
  Report Type: Spontaneous
  Country: US (occurrence: US)
  Receive Date: 20210121
  Receipt Date: 20210218
  Transmission Date: 20210419
  Serious: No
  Sender: FDA-Public Use
  Company Number: US-PFIZER INC-2021034803

PATIENT
  Age: 43 Year
  Sex: Female
  Weight: 115 kg

DRUGS (1)
  1. XELJANZ XR [Suspect]
     Active Substance: TOFACITINIB CITRATE
     Dosage: 11 MG, DAILY
     Route: 048

REACTIONS (3)
  - COVID-19 [Unknown]
  - Pollakiuria [Unknown]
  - Pain in extremity [Unknown]

NARRATIVE: CASE EVENT DATE: 202012
